FAERS Safety Report 7016614-9 (Version None)
Quarter: 2010Q3

REPORT INFORMATION
  Report Type: 
  Country: None (occurrence: None)
  Receive Date: 20100927
  Receipt Date: 20100915
  Transmission Date: 20110219
  Serious: No
  Sender: FDA-Public Use
  Company Number: B0669182A

PATIENT
  Sex: Female

DRUGS (3)
  1. PAXIL [Suspect]
     Indication: DEPRESSION
     Dosage: 10MG PER DAY
     Route: 048
     Dates: start: 20100716
  2. ARICEPT [Concomitant]
     Indication: DEMENTIA ALZHEIMER'S TYPE
     Dosage: 5MG PER DAY
     Route: 048
     Dates: start: 20100312
  3. HALCION [Concomitant]
     Indication: INSOMNIA
     Dosage: .125MG PER DAY
     Route: 048
     Dates: start: 20100312

REACTIONS (3)
  - DECREASED APPETITE [None]
  - DIZZINESS [None]
  - NAUSEA [None]
